FAERS Safety Report 10302194 (Version 2)
Quarter: 2014Q3

REPORT INFORMATION
  Report Type: Spontaneous
  Country: IT (occurrence: None)
  Receive Date: 20140709
  Receipt Date: 20140718
  Transmission Date: 20150326
  Serious: Yes (Hospitalization)
  Sender: FDA-Public Use
  Company Number: IT-H14001-14-00167

PATIENT
  Sex: Female

DRUGS (2)
  1. AMIODARONE HIKMA [Suspect]
     Active Substance: AMIODARONE
     Indication: ATRIAL FIBRILLATION
     Route: 042
     Dates: start: 20140625, end: 20140625
  2. AMIODARONE HIKMA [Suspect]
     Active Substance: AMIODARONE
     Indication: DISEASE RECURRENCE
     Route: 042
     Dates: start: 20140625, end: 20140625

REACTIONS (2)
  - Chest discomfort [None]
  - Erythema [None]

NARRATIVE: CASE EVENT DATE: 20140625
